FAERS Safety Report 24070721 (Version 1)
Quarter: 2024Q3

REPORT INFORMATION
  Report Type: Report from Study
  Country: US (occurrence: US)
  Receive Date: 20240710
  Receipt Date: 20240710
  Transmission Date: 20241017
  Serious: No
  Sender: ROCHE
  Company Number: US-ROCHE-3383730

PATIENT
  Age: 77 Year
  Sex: Female

DRUGS (17)
  1. ALECENSA [Suspect]
     Active Substance: ALECTINIB HYDROCHLORIDE
     Indication: Uterine cancer
     Route: 048
  2. ALECENSA [Suspect]
     Active Substance: ALECTINIB HYDROCHLORIDE
     Indication: Abdominal distension
  3. ALECENSA [Suspect]
     Active Substance: ALECTINIB HYDROCHLORIDE
     Indication: Pelvic mass
  4. ALECENSA [Suspect]
     Active Substance: ALECTINIB HYDROCHLORIDE
     Indication: Mass
  5. BENZONATATE [Concomitant]
     Active Substance: BENZONATATE
  6. ONDANSETRON [Concomitant]
     Active Substance: ONDANSETRON
  7. PROMETHAZINE [Concomitant]
     Active Substance: PROMETHAZINE HYDROCHLORIDE
  8. TEMOVATE [Concomitant]
     Active Substance: CLOBETASOL PROPIONATE
  9. TRIAMCINOLONE [Concomitant]
     Active Substance: TRIAMCINOLONE
  10. ASPIRIN [Concomitant]
     Active Substance: ASPIRIN
  11. LISINOPRIL AND HYDROCHLOROTHIAZIDE [Concomitant]
     Active Substance: HYDROCHLOROTHIAZIDE\LISINOPRIL
  12. MIRALAX [Concomitant]
     Active Substance: POLYETHYLENE GLYCOL 3350
  13. MOTRIN [Concomitant]
     Active Substance: IBUPROFEN
  14. OXYCODONE [Concomitant]
     Active Substance: OXYCODONE
  15. VITAMIN D3 [Concomitant]
     Active Substance: CHOLECALCIFEROL
  16. XARELTO [Concomitant]
     Active Substance: RIVAROXABAN
  17. TYLENOL [Concomitant]
     Active Substance: ACETAMINOPHEN

REACTIONS (1)
  - Diarrhoea [Unknown]
